FAERS Safety Report 5747820-9 (Version None)
Quarter: 2008Q2

REPORT INFORMATION
  Report Type: 
  Country: None (occurrence: None)
  Receive Date: 20080523
  Receipt Date: 20080513
  Transmission Date: 20081010
  Serious: Yes (Hospitalization)
  Sender: FDA-Public Use
  Company Number: B0520298A

PATIENT
  Age: 85 Year
  Sex: Female

DRUGS (1)
  1. ADARTREL [Suspect]
     Indication: RESTLESS LEGS SYNDROME
     Dosage: .5MG PER DAY
     Route: 048
     Dates: start: 20080401

REACTIONS (4)
  - ANURIA [None]
  - BLOOD CREATININE INCREASED [None]
  - OVERDOSE [None]
  - RENAL FAILURE ACUTE [None]
